FAERS Safety Report 9412442 (Version 1)
Quarter: 2013Q3

REPORT INFORMATION
  Report Type: Report from Study
  Country: US (occurrence: US)
  Receive Date: 20130722
  Receipt Date: 20130722
  Transmission Date: 20140515
  Serious: Yes (Hospitalization)
  Sender: FDA-Public Use
  Company Number: US-SANOFI-AVENTIS-2013SA072941

PATIENT
  Sex: Female
  Weight: 70.6 kg

DRUGS (3)
  1. ELOXATIN [Suspect]
     Route: 042
     Dates: start: 20100811, end: 20100811
  2. BEVACIZUMAB [Suspect]
     Route: 042
     Dates: start: 20100811, end: 20100811
  3. IRINOTECAN [Suspect]
     Route: 065
     Dates: start: 20100811, end: 20100811

REACTIONS (3)
  - Hyponatraemia [Recovered/Resolved]
  - Decreased appetite [Not Recovered/Not Resolved]
  - Fatigue [Not Recovered/Not Resolved]
